FAERS Safety Report 18620923 (Version 1)
Quarter: 2020Q4

REPORT INFORMATION
  Report Type: Spontaneous
  Country: IE (occurrence: IE)
  Receive Date: 20201215
  Receipt Date: 20201215
  Transmission Date: 20210114
  Serious: Yes (Other)
  Sender: FDA-Public Use
  Company Number: IE-BAYER-2020-269219

PATIENT
  Age: 6 Year
  Sex: Female

DRUGS (1)
  1. STIVARGA [Suspect]
     Active Substance: REGORAFENIB
     Indication: EMBRYONAL RHABDOMYOSARCOMA
     Dosage: UNK
     Dates: start: 20200720, end: 20201207

REACTIONS (6)
  - Product administered to patient of inappropriate age [None]
  - Embryonal rhabdomyosarcoma [Unknown]
  - Off label use [None]
  - Metastases to peritoneum [Unknown]
  - Ascites [Unknown]
  - Product use in unapproved indication [None]
